FAERS Safety Report 8481986-5 (Version None)
Quarter: 2012Q3

REPORT INFORMATION
  Report Type: 
  Country: None (occurrence: None)
  Receive Date: 20120702
  Receipt Date: 20120622
  Transmission Date: 20120928
  Serious: Yes (Disabling, Other)
  Sender: FDA-Public Use
  Company Number: PHHY2012NO055524

PATIENT
  Sex: Male

DRUGS (2)
  1. ONBREZ [Suspect]
     Dosage: 150 UG, UNK
     Dates: start: 20111025
  2. SPIRIVA [Suspect]
     Dosage: 18 UG, UNK
     Dates: start: 20111025

REACTIONS (1)
  - PARAESTHESIA [None]
